FAERS Safety Report 4414277-X (Version None)
Quarter: 2004Q3

REPORT INFORMATION
  Report Type: 
  Country: None (occurrence: None)
  Receive Date: 20040729
  Receipt Date: 20040720
  Transmission Date: 20050211
  Serious: Yes (Other)
  Sender: FDA-Public Use
  Company Number: CEL-2004-01474-SLO

PATIENT
  Age: 7 Year
  Sex: Male
  Weight: 23 kg

DRUGS (1)
  1. EQUASYM 5MG (METHYLPHENIDATE HYDROCHLORIDE) [Suspect]
     Dosage: 5 MG TWICE DAILY, PER ORAL
     Route: 048
     Dates: start: 20030901, end: 20040601

REACTIONS (1)
  - DRUG INEFFECTIVE [None]
